FAERS Safety Report 21570546 (Version 1)
Quarter: 2022Q4

REPORT INFORMATION
  Report Type: Spontaneous
  Country: CA (occurrence: CA)
  Receive Date: 20221109
  Receipt Date: 20221109
  Transmission Date: 20230113
  Serious: Yes (Death, Hospitalization)
  Sender: FDA-Public Use
  Company Number: CA-ASPEN-GLO2021CA000084

PATIENT
  Age: 63 Year
  Sex: Female

DRUGS (5)
  1. OMALIZUMAB [Suspect]
     Active Substance: OMALIZUMAB
     Indication: Asthma
     Dosage: UNK
     Route: 058
  2. LIDOCAINE HYDROCHLORIDE [Suspect]
     Active Substance: LIDOCAINE HYDROCHLORIDE
     Indication: Product used for unknown indication
     Dosage: UNK
     Route: 065
  3. ADVAIR HFA [Concomitant]
     Active Substance: FLUTICASONE PROPIONATE\SALMETEROL XINAFOATE
     Indication: Product used for unknown indication
     Dosage: UNK
  4. GUAIFENESIN [Concomitant]
     Active Substance: GUAIFENESIN
     Indication: Product used for unknown indication
     Dosage: UNK
  5. PREDNISONE [Concomitant]
     Active Substance: PREDNISONE
     Indication: Product used for unknown indication
     Dosage: UNK

REACTIONS (15)
  - Drug hypersensitivity [Fatal]
  - Loss of consciousness [Fatal]
  - Pneumonia [Fatal]
  - Asthma [Fatal]
  - Back pain [Fatal]
  - Blood pressure diastolic decreased [Fatal]
  - Blood pressure systolic increased [Fatal]
  - Dyspnoea [Fatal]
  - Erythema [Fatal]
  - Food allergy [Fatal]
  - Heart rate increased [Fatal]
  - Influenza [Fatal]
  - Myalgia [Fatal]
  - Productive cough [Fatal]
  - Vomiting [Fatal]
